FAERS Safety Report 6282894-0 (Version None)
Quarter: 2009Q3

REPORT INFORMATION
  Report Type: 
  Country: None (occurrence: None)
  Receive Date: 20090722
  Receipt Date: 20090708
  Transmission Date: 20100115
  Serious: Yes (Other)
  Sender: FDA-Public Use
  Company Number: CIP09001837

PATIENT
  Age: 48 Year
  Sex: Female

DRUGS (5)
  1. ACTONEL [Suspect]
     Indication: OSTEOPOROSIS
     Dosage: 75 MG 2 CONSECUTIVE DAYS MONTHLY, ORAL
     Route: 048
     Dates: start: 20080101, end: 20080902
  2. THYROID TAB [Concomitant]
  3. CRESTOR [Concomitant]
  4. MICROGESTIN (ETHINYLESTRADIOL, NORETHISTERONE ACETATE) [Concomitant]
  5. PRILOSEC [Concomitant]

REACTIONS (4)
  - CYSTITIS INTERSTITIAL [None]
  - HEADACHE [None]
  - MYALGIA [None]
  - URINARY TRACT DISORDER [None]
